FAERS Safety Report 14661335 (Version 1)
Quarter: 2018Q1

REPORT INFORMATION
  Report Type: Spontaneous
  Country: CN (occurrence: CN)
  Receive Date: 20180320
  Receipt Date: 20180320
  Transmission Date: 20180509
  Serious: Yes (Other)
  Sender: FDA-Public Use
  Company Number: CN-PFIZER INC-2018108748

PATIENT
  Age: 7 Decade
  Sex: Male

DRUGS (1)
  1. SOLU-MEDROL [Suspect]
     Active Substance: METHYLPREDNISOLONE SODIUM SUCCINATE
     Indication: KERATORHEXIS
     Dosage: 80 MG, UNK
     Route: 041

REACTIONS (4)
  - Shock [Recovering/Resolving]
  - Heart rate increased [Unknown]
  - Night sweats [Unknown]
  - Hypotension [Unknown]
